FAERS Safety Report 20870070 (Version 1)
Quarter: 2022Q2

REPORT INFORMATION
  Report Type: Report from Study
  Country: BR (occurrence: BR)
  Receive Date: 20220525
  Receipt Date: 20220525
  Transmission Date: 20220720
  Serious: Yes (Other)
  Sender: FDA-Public Use
  Company Number: BR-NOVARTISPH-NVSC2022BR119322

PATIENT
  Sex: Female

DRUGS (2)
  1. INDACATEROL MALEATE [Suspect]
     Active Substance: INDACATEROL MALEATE
     Indication: Emphysema
     Dosage: 300 UG, QD (30 CAPSULES, MORNING PERIOD ONCE A DAY, 4 YEARS AGO)
     Route: 065
  2. MOMETASONE FUROATE [Concomitant]
     Active Substance: MOMETASONE FUROATE
     Indication: Emphysema
     Dosage: 400 UG, QD (MORNING PERIOD)
     Route: 065

REACTIONS (2)
  - Drug dependence [Unknown]
  - Dyspnoea [Unknown]
